FAERS Safety Report 9962701 (Version 1)
Quarter: 2014Q1

REPORT INFORMATION
  Report Type: Report from Study
  Country: US (occurrence: US)
  Receive Date: 20140305
  Receipt Date: 20140305
  Transmission Date: 20141002
  Serious: No
  Sender: FDA-Public Use
  Company Number: US-ABBVIE-13P-163-1112298-00

PATIENT
  Age: 62 Year
  Sex: Female

DRUGS (7)
  1. HUMIRA [Suspect]
     Indication: CROHN^S DISEASE
     Dates: start: 20130619, end: 20130619
  2. DILTIAZEM [Concomitant]
     Indication: HYPERTENSION
     Dosage: 360 MG EVERY MORNING
  3. NASONEX [Concomitant]
     Indication: ALLERGIC SINUSITIS
     Dosage: 2 SPRAYS EACH MORNING
  4. PREDNISONE [Concomitant]
     Indication: PRODUCT USED FOR UNKNOWN INDICATION
     Dosage: 20 MG ONCE DAILY
  5. NEBULIZER TREATMENTS [Concomitant]
     Indication: ASTHMA
  6. IMODIUM [Concomitant]
     Indication: CROHN^S DISEASE
  7. TYLENOL [Concomitant]
     Indication: HEADACHE

REACTIONS (2)
  - Fatigue [Not Recovered/Not Resolved]
  - Headache [Not Recovered/Not Resolved]
